FAERS Safety Report 11339872 (Version 2)
Quarter: 2016Q3

REPORT INFORMATION
  Report Type: Report from Study
  Country: US (occurrence: US)
  Receive Date: 20150805
  Receipt Date: 20160817
  Transmission Date: 20161109
  Serious: Yes (Hospitalization, Other)
  Sender: FDA-Public Use
  Company Number: US-GILEAD-2015-0162527

PATIENT
  Age: 46 Year
  Sex: Male

DRUGS (17)
  1. AMBRISENTAN [Suspect]
     Active Substance: AMBRISENTAN
     Indication: PULMONARY HYPERTENSION
     Dosage: 10 MG, QD
     Route: 065
     Dates: start: 20150422
  2. ADCIRCA [Suspect]
     Active Substance: TADALAFIL
     Indication: PRODUCT USED FOR UNKNOWN INDICATION
     Route: 065
  3. SEROQUEL [Concomitant]
     Active Substance: QUETIAPINE FUMARATE
  4. SIMVASTATIN. [Concomitant]
     Active Substance: SIMVASTATIN
  5. HYDROCODONE [Concomitant]
     Active Substance: HYDROCODONE
  6. VITAMIN B-1 [Concomitant]
     Active Substance: THIAMINE
  7. VITAMIN B12 [Concomitant]
     Active Substance: CYANOCOBALAMIN
  8. LEVOTHYROXINE. [Concomitant]
     Active Substance: LEVOTHYROXINE
  9. LISINOPRIL. [Concomitant]
     Active Substance: LISINOPRIL
  10. WARFARIN [Concomitant]
     Active Substance: WARFARIN
  11. METRONIDAZOLE. [Concomitant]
     Active Substance: METRONIDAZOLE
  12. VANCOMYCIN [Concomitant]
     Active Substance: VANCOMYCIN
  13. FUROSEMIDE. [Concomitant]
     Active Substance: FUROSEMIDE
  14. FOLIC ACID. [Concomitant]
     Active Substance: FOLIC ACID
  15. DOCQLACE [Concomitant]
     Active Substance: DOCUSATE SODIUM
  16. LASIX [Concomitant]
     Active Substance: FUROSEMIDE
  17. COUMADIN [Concomitant]
     Active Substance: WARFARIN SODIUM

REACTIONS (11)
  - Cardiac failure congestive [Unknown]
  - Urinary retention [Unknown]
  - Myocardial infarction [Unknown]
  - Coma [Unknown]
  - Atrial fibrillation [Unknown]
  - Terminal state [Unknown]
  - Fluid overload [Unknown]
  - Oedema [Unknown]
  - Chronic hepatic failure [Unknown]
  - Cerebrovascular accident [Unknown]
  - Stress [Unknown]

NARRATIVE: CASE EVENT DATE: 20150722
